FAERS Safety Report 4728348-1 (Version None)
Quarter: 2005Q3

REPORT INFORMATION
  Report Type: 
  Country: None (occurrence: None)
  Receive Date: 20050727
  Receipt Date: 20050714
  Transmission Date: 20060218
  Serious: Yes (Hospitalization)
  Sender: FDA-Public Use
  Company Number: 2005103497

PATIENT
  Sex: Female
  Weight: 70.7611 kg

DRUGS (8)
  1. ZOLOFT [Suspect]
     Indication: ANXIETY
     Dosage: ORAL
     Route: 048
  2. ZOLOFT [Suspect]
     Indication: DEPRESSION
     Dosage: ORAL
     Route: 048
  3. ZOLOFT [Suspect]
     Indication: OBSESSIVE-COMPULSIVE DISORDER
     Dosage: ORAL
     Route: 048
  4. ZOLOFT [Suspect]
     Indication: PANIC ATTACK
     Dosage: ORAL
     Route: 048
  5. NEURONTIN [Suspect]
     Indication: DEPRESSION
     Dosage: ORAL
     Route: 048
  6. GEODON [Suspect]
     Indication: NEUROSIS
     Dosage: 40 MG
     Dates: start: 20050701
  7. LAMICTAL [Concomitant]
  8. ALL OTHER THERAPEUTIC PRODUCTS (ALL OTHER THERAPEUTIC PRODUCTS) [Concomitant]

REACTIONS (10)
  - FEELING GUILTY [None]
  - HUNGER [None]
  - INCREASED APPETITE [None]
  - NAUSEA [None]
  - NEUROSIS [None]
  - ROAD TRAFFIC ACCIDENT [None]
  - STRESS [None]
  - SUICIDE ATTEMPT [None]
  - ULCER [None]
  - VICTIM OF CRIME [None]
